FAERS Safety Report 16093449 (Version 1)
Quarter: 2019Q1

REPORT INFORMATION
  Report Type: Spontaneous
  Country: GB (occurrence: GB)
  Receive Date: 20190320
  Receipt Date: 20190320
  Transmission Date: 20190418
  Serious: Yes (Hospitalization)
  Sender: FDA-Public Use
  Company Number: GB-TEVA-2019-GB-1025970

PATIENT
  Age: 77 Year
  Sex: Female

DRUGS (4)
  1. CHLORDIAZEPOXIDE HYDROCHLORIDE. [Suspect]
     Active Substance: CHLORDIAZEPOXIDE HYDROCHLORIDE
     Indication: EPILEPSY
     Dosage: 5 MILLIGRAM DAILY; NIGHT.
     Route: 048
     Dates: start: 1995
  2. PHENOBARBITAL SODIUM. [Suspect]
     Active Substance: PHENOBARBITAL SODIUM
     Indication: EPILEPSY
     Dosage: 45 MILLIGRAM DAILY;
     Route: 048
     Dates: start: 1995
  3. TRIHEXYPHENIDYL HYDROCHLORIDE. [Suspect]
     Active Substance: TRIHEXYPHENIDYL HYDROCHLORIDE
     Indication: PARKINSONISM
     Dosage: 6 MILLIGRAM DAILY;
     Route: 048
     Dates: start: 1995
  4. DIAZEPAM. [Suspect]
     Active Substance: DIAZEPAM
     Indication: ANXIETY
     Dosage: 6 MILLIGRAM DAILY;
     Route: 048
     Dates: start: 1995

REACTIONS (2)
  - Somnolence [Recovered/Resolved with Sequelae]
  - Unresponsive to stimuli [Unknown]

NARRATIVE: CASE EVENT DATE: 20190219
